FAERS Safety Report 9157049 (Version 1)
Quarter: 2013Q1

REPORT INFORMATION
  Report Type: Spontaneous
  Country: US (occurrence: US)
  Receive Date: 20130312
  Receipt Date: 20130312
  Transmission Date: 20140127
  Serious: No
  Sender: FDA-Public Use
  Company Number: US-PFIZER INC-2013078106

PATIENT
  Sex: Female

DRUGS (5)
  1. DILTIAZEM HCL [Suspect]
     Dosage: UNK
  2. MORPHINE SULFATE [Suspect]
     Dosage: UNK
  3. FIORINAL [Suspect]
     Dosage: UNK
  4. ISOSORBIDE MONONITRATE [Suspect]
     Dosage: UNK
  5. BACTRIM [Suspect]
     Dosage: UNK

REACTIONS (1)
  - Drug hypersensitivity [Unknown]
